FAERS Safety Report 5149873-8 (Version None)
Quarter: 2006Q4

REPORT INFORMATION
  Report Type: 
  Country: None (occurrence: None)
  Receive Date: 20060918
  Receipt Date: 20051222
  Transmission Date: 20070319
  Serious: Yes (Other)
  Sender: FDA-Public Use
  Company Number: US-JNJFOC-20051205731

PATIENT
  Age: 9 Year
  Sex: Female
  Weight: 36.2878 kg

DRUGS (1)
  1. TOPAMAX [Suspect]
     Indication: MIGRAINE PROPHYLAXIS
     Dosage: ^APPROXIMATELY 1 MONTH^
     Dates: start: 20030101, end: 20030101

REACTIONS (6)
  - CRYING [None]
  - DELIRIUM [None]
  - HEADACHE [None]
  - SCREAMING [None]
  - SUICIDAL IDEATION [None]
  - VOMITING [None]
